FAERS Safety Report 11467380 (Version 2)
Quarter: 2015Q3

REPORT INFORMATION
  Report Type: Spontaneous
  Country: US (occurrence: US)
  Receive Date: 20150908
  Receipt Date: 20150911
  Transmission Date: 20151125
  Serious: No
  Sender: FDA-Public Use
  Company Number: US-009507513-1508USA009981

PATIENT
  Sex: Female

DRUGS (4)
  1. PLAVIX [Concomitant]
     Active Substance: CLOPIDOGREL BISULFATE
     Dosage: UNK
  2. DIOVAN [Concomitant]
     Active Substance: VALSARTAN
     Dosage: UNK
  3. VITAMINS (UNSPECIFIED) [Concomitant]
     Active Substance: VITAMINS
     Dosage: UNK
  4. ASMANEX [Suspect]
     Active Substance: MOMETASONE FUROATE
     Indication: ASTHMA
     Dosage: 2 INHALATION TWICE A DAY
     Route: 055
     Dates: start: 201008

REACTIONS (3)
  - Underdose [Unknown]
  - Product quality issue [Unknown]
  - Dyspnoea [Not Recovered/Not Resolved]
